FAERS Safety Report 15779544 (Version 1)
Quarter: 2019Q1

REPORT INFORMATION
  Report Type: Spontaneous
  Country: US (occurrence: US)
  Receive Date: 20190101
  Receipt Date: 20190101
  Transmission Date: 20190417
  Serious: Yes (Hospitalization, Other)
  Sender: FDA-Public Use
  Company Number: US-ALKEM LABORATORIES LIMITED-US-ALKEM-2018-08447

PATIENT
  Age: 44 Year
  Sex: Male

DRUGS (3)
  1. MYCOPHENOLATE MOFETIL. [Suspect]
     Active Substance: MYCOPHENOLATE MOFETIL
     Indication: IMMUNOSUPPRESSANT DRUG THERAPY
     Dosage: UNK
     Route: 065
  2. MYCOPHENOLATE MOFETIL. [Suspect]
     Active Substance: MYCOPHENOLATE MOFETIL
     Indication: DRUG DEPENDENCE
     Dosage: TITRATED UPTO 1500 MG, BID
     Route: 065
  3. PREDNISONE. [Suspect]
     Active Substance: PREDNISONE
     Indication: DERMATITIS CONTACT
     Dosage: 40 TO 60 MG, QD
     Route: 065

REACTIONS (5)
  - Cellulitis [Recovered/Resolved]
  - Drug ineffective [Unknown]
  - Pneumonia [Unknown]
  - Sepsis [Unknown]
  - Oesophageal candidiasis [Unknown]
